FAERS Safety Report 4301861-7 (Version None)
Quarter: 2004Q1

REPORT INFORMATION
  Report Type: 
  Country: None (occurrence: None)
  Receive Date: 20040223
  Receipt Date: 20040217
  Transmission Date: 20041129
  Serious: Yes (Death)
  Sender: FDA-Public Use
  Company Number: FR-GLAXOSMITHKLINE-B0323980A

PATIENT
  Age: 34 Year
  Sex: Male

DRUGS (2)
  1. ZYBAN [Suspect]
     Dosage: 150MG UNKNOWN
     Route: 048
  2. NEUROLEPTIC [Concomitant]

REACTIONS (4)
  - CONFUSIONAL STATE [None]
  - MALAISE [None]
  - SUDDEN DEATH [None]
  - TREMOR [None]
